FAERS Safety Report 24088509 (Version 1)
Quarter: 2024Q3

REPORT INFORMATION
  Report Type: Report from Study
  Country: US (occurrence: None)
  Receive Date: 20240715
  Receipt Date: 20240715
  Transmission Date: 20241017
  Serious: Yes (Other)
  Sender: ASTRAZENECA
  Company Number: 2018SF18736

PATIENT
  Age: 31495 Day
  Sex: Female

DRUGS (1)
  1. IMFINZI [Suspect]
     Active Substance: DURVALUMAB
     Route: 042
     Dates: start: 20180724

REACTIONS (10)
  - Blood iron decreased [Unknown]
  - Positron emission tomogram abnormal [Unknown]
  - Urinary tract infection [Recovering/Resolving]
  - Balance disorder [Unknown]
  - Back pain [Unknown]
  - Sciatica [Unknown]
  - Stress [Unknown]
  - Gingival swelling [Recovered/Resolved]
  - Vision blurred [Unknown]
  - Feeling abnormal [Recovered/Resolved]

NARRATIVE: CASE EVENT DATE: 20180910
